FAERS Safety Report 6879424-9 (Version None)
Quarter: 2010Q3

REPORT INFORMATION
  Report Type: 
  Country: None (occurrence: None)
  Receive Date: 20100728
  Receipt Date: 20100716
  Transmission Date: 20110219
  Serious: Yes (Hospitalization, Other)
  Sender: FDA-Public Use
  Company Number: PHHY2010DE38540

PATIENT
  Sex: Female

DRUGS (9)
  1. INTERFERON BETA 1B INBB+ [Suspect]
     Indication: MULTIPLE SCLEROSIS
     Dosage: UNK, UNK
     Route: 058
     Dates: start: 20100320, end: 20100415
  2. TOPIRAMATE [Concomitant]
     Indication: EPILEPSY
     Dosage: 100 MG, BID
     Route: 048
     Dates: start: 20010101
  3. METFORMIN HCL [Concomitant]
     Indication: DIABETES MELLITUS
     Dosage: 1000 MG, BID
     Route: 048
  4. GLIMEPIRIDE [Concomitant]
     Indication: DIABETES MELLITUS
     Dosage: 1 MG, QD
     Route: 048
  5. RAMIPRIL [Concomitant]
     Indication: HYPERTENSION
     Dosage: 10 MG, QD
     Route: 048
  6. MOXONIDINE [Concomitant]
     Indication: HYPERTENSION
     Dosage: 0.4 MG, QD
     Route: 048
  7. METOPROLOL TARTRATE [Concomitant]
     Indication: HYPERTENSION
     Dosage: 190 MG, QD
     Route: 048
  8. TORSEMIDE [Concomitant]
     Indication: HYPERTENSION
     Dosage: 10 MG, QD
  9. EZETIMIBE W/SIMVASTATIN [Concomitant]
     Indication: DYSLIPIDAEMIA
     Dosage: 10/20 MG ONCE A DAY

REACTIONS (4)
  - APHASIA [None]
  - MULTIPLE SCLEROSIS RELAPSE [None]
  - PARESIS [None]
  - SENSORY DISTURBANCE [None]
